FAERS Safety Report 9411300 (Version 1)
Quarter: 2013Q3

REPORT INFORMATION
  Report Type: Spontaneous
  Country: US (occurrence: US)
  Receive Date: 20130722
  Receipt Date: 20130722
  Transmission Date: 20140515
  Serious: No
  Sender: FDA-Public Use
  Company Number: US-BIOGENIDEC-2013BI064394

PATIENT
  Sex: Female

DRUGS (1)
  1. AVONEX [Suspect]
     Indication: MULTIPLE SCLEROSIS
     Route: 030
     Dates: start: 20121201

REACTIONS (5)
  - Hypoaesthesia [Not Recovered/Not Resolved]
  - Stress [Unknown]
  - Anger [Unknown]
  - Paraesthesia [Unknown]
  - Mood altered [Not Recovered/Not Resolved]
